FAERS Safety Report 18634786 (Version 1)
Quarter: 2020Q4

REPORT INFORMATION
  Report Type: Spontaneous
  Country: AU (occurrence: AU)
  Receive Date: 20201218
  Receipt Date: 20201218
  Transmission Date: 20210114
  Serious: Yes (Hospitalization)
  Sender: FDA-Public Use
  Company Number: AU-PFIZER INC-2020496345

PATIENT
  Age: 66 Year
  Sex: Female

DRUGS (12)
  1. ASPIRINE [Suspect]
     Active Substance: ASPIRIN
     Indication: NEPHROSCLEROSIS
     Dosage: 150 MG, DAILY
  2. PRAZOSIN HCL [Suspect]
     Active Substance: PRAZOSIN HYDROCHLORIDE
     Indication: NEPHROSCLEROSIS
     Dosage: 5 MG, 3X/DAY
  3. PROPRANOLOL [Suspect]
     Active Substance: PROPRANOLOL HYDROCHLORIDE
     Indication: NEPHROSCLEROSIS
  4. METHYLDOPA. [Suspect]
     Active Substance: METHYLDOPA
     Indication: NEPHROSCLEROSIS
     Dosage: 250 MG, 4X/DAY
  5. DIGOXIN. [Suspect]
     Active Substance: DIGOXIN
     Indication: NEPHROSCLEROSIS
     Dosage: 62.5 UG, DAILY
  6. PROPRANOLOL [Suspect]
     Active Substance: PROPRANOLOL HYDROCHLORIDE
     Indication: HYPERTENSION
     Dosage: 80 MG, 2X/DAY
  7. CHLOROTHIAZIDE. [Suspect]
     Active Substance: CHLOROTHIAZIDE
     Indication: NEPHROSCLEROSIS
     Dosage: 500 MG, DAILY
  8. NIFEDIPINE. [Suspect]
     Active Substance: NIFEDIPINE
     Dosage: 20 MG, 2X/DAY (SUSTAINED RELEASE)
  9. ENALAPRIL [Suspect]
     Active Substance: ENALAPRIL
     Dosage: 10 MG, 2X/DAY
  10. INDOMETHACIN [INDOMETACIN] [Suspect]
     Active Substance: INDOMETHACIN
     Indication: OSTEOARTHRITIS
     Dosage: 25 MG, 4X/DAY
  11. TETRACYCLINE HCL [Suspect]
     Active Substance: TETRACYCLINE HYDROCHLORIDE
     Indication: UPPER RESPIRATORY TRACT INFECTION
     Dosage: 500 MG, 2X/DAY
  12. ENALAPRIL [Suspect]
     Active Substance: ENALAPRIL
     Indication: HYPERTENSION
     Dosage: 5 MG, 2X/DAY

REACTIONS (1)
  - Acute kidney injury [Recovering/Resolving]
